FAERS Safety Report 25390452 (Version 5)
Quarter: 2025Q4

REPORT INFORMATION
  Report Type: Report from Study
  Country: US (occurrence: US)
  Receive Date: 20250603
  Receipt Date: 20251216
  Transmission Date: 20260118
  Serious: Yes (Other)
  Sender: PFIZER
  Company Number: US-PFIZER INC-PV202300080238

PATIENT
  Age: 74 Year
  Sex: Male

DRUGS (5)
  1. BOSULIF [Suspect]
     Active Substance: BOSUTINIB MONOHYDRATE
     Indication: Leukaemia
     Dosage: 100 MG, DAILY (EVERY DAY WITH FOOD, SWALLOWING WHOLE, DO NOT BREAK, CRUSH, CHEW AND/OR DIVID)
     Route: 048
  2. BOSULIF [Suspect]
     Active Substance: BOSUTINIB MONOHYDRATE
     Dosage: ALTERNATE DAY (DOSAGE EVERY OTHER DAY. TAKE 200MG (2 TABS) DAY 1, THEN 100 MG (1 TABLET) DAY 2)
     Route: 048
  3. BOSULIF [Suspect]
     Active Substance: BOSUTINIB MONOHYDRATE
     Dosage: ALTERNATE DOSAGE EVERY OTHER DAY. 2 TABS ALT WITH 1 TAB
     Route: 048
  4. BOSULIF [Suspect]
     Active Substance: BOSUTINIB MONOHYDRATE
     Dosage: 100 MG
     Route: 048
  5. BOSULIF [Suspect]
     Active Substance: BOSUTINIB MONOHYDRATE
     Dosage: ALTERNATE DOSAGE EVERY OTHER DAY. TAKE 200 MG DAY ONE, THEN 100MG DAY 2 BY MOUTH EVERY DAY
     Route: 048

REACTIONS (2)
  - Nephrolithiasis [Unknown]
  - Off label use [Unknown]

NARRATIVE: CASE EVENT DATE: 20250401
